FAERS Safety Report 25396712 (Version 1)
Quarter: 2025Q2

REPORT INFORMATION
  Report Type: Spontaneous
  Country: US (occurrence: US)
  Receive Date: 20250604
  Receipt Date: 20250604
  Transmission Date: 20250717
  Serious: Yes (Death, Other)
  Sender: AMGEN
  Company Number: US-AMGEN-USASP2025105771

PATIENT

DRUGS (1)
  1. CARFILZOMIB [Suspect]
     Active Substance: CARFILZOMIB
     Indication: Product used for unknown indication
     Route: 065

REACTIONS (13)
  - Death [Fatal]
  - Cardiac failure [Unknown]
  - Myocardial infarction [Unknown]
  - Cardiac arrest [Unknown]
  - Conduction disorder [Unknown]
  - Cardiac valve disease [Unknown]
  - Atrial fibrillation [Unknown]
  - Atrial flutter [Unknown]
  - Ventricular arrhythmia [Unknown]
  - Supraventricular tachycardia [Unknown]
  - Sinus bradycardia [Unknown]
  - Pericardial effusion [Unknown]
  - Cytokine release syndrome [Unknown]
